FAERS Safety Report 8806916 (Version 1)
Quarter: 2012Q4

REPORT INFORMATION
  Report Type: Spontaneous
  Country: AU (occurrence: None)
  Receive Date: 20120919
  Receipt Date: 20120919
  Transmission Date: 20130627
  Serious: Yes (Hospitalization, Other)
  Sender: FDA-Public Use
  Company Number: 2012MA010947

PATIENT
  Age: 55 Day
  Sex: Male
  Weight: 2.2 kg

DRUGS (1)
  1. FEVERALL [Suspect]
     Dosage: 300 mg; ngt

REACTIONS (3)
  - Accidental overdose [None]
  - Medication error [None]
  - International normalised ratio increased [None]
